FAERS Safety Report 15805703 (Version 2)
Quarter: 2019Q2

REPORT INFORMATION
  Report Type: Spontaneous
  Country: ZA (occurrence: ZA)
  Receive Date: 20190110
  Receipt Date: 20190509
  Transmission Date: 20190711
  Serious: Yes (Other)
  Sender: FDA-Public Use
  Company Number: ZA-SA-2019SA005560

PATIENT
  Sex: Male

DRUGS (2)
  1. FABRAZYME [Suspect]
     Active Substance: AGALSIDASE BETA
     Indication: FABRY^S DISEASE
     Dosage: 1 MG/KG, QOW
     Route: 041
  2. VALGAN [Concomitant]
     Active Substance: VALGANCICLOVIR HYDROCHLORIDE
     Dosage: QD
     Route: 065
     Dates: start: 20180904

REACTIONS (11)
  - Cytomegalovirus test positive [Unknown]
  - Renal impairment [Unknown]
  - Condition aggravated [Unknown]
  - Folate deficiency [Unknown]
  - Diarrhoea [Unknown]
  - Weight decreased [Unknown]
  - Nephropathy [Unknown]
  - Magnesium deficiency [Unknown]
  - Enzyme level abnormal [Unknown]
  - Dehydration [Unknown]
  - Malabsorption [Unknown]

NARRATIVE: CASE EVENT DATE: 2018
